FAERS Safety Report 7504531-7 (Version None)
Quarter: 2011Q2

REPORT INFORMATION
  Report Type: 
  Country: None (occurrence: None)
  Receive Date: 20110525
  Receipt Date: 20110516
  Transmission Date: 20111010
  Serious: Yes (Hospitalization)
  Sender: FDA-Public Use
  Company Number: BR-SANOFI-AVENTIS-2011SA030783

PATIENT
  Sex: Male
  Weight: 84 kg

DRUGS (14)
  1. LANTUS [Suspect]
     Dosage: BEGAN TREATMENT ABOUT FOUR YEARS AGO.
     Route: 058
  2. MYFORTIC [Concomitant]
     Route: 048
     Dates: start: 20090909
  3. PROGRAF [Concomitant]
     Route: 048
     Dates: start: 20090909
  4. CLONIDINE HYDROCHLORIDE [Concomitant]
     Indication: BLOOD PRESSURE
     Route: 048
  5. SOLOSTAR [Suspect]
     Dosage: BEGAN TREATMENT ABOUT FOUR YEARS AGO.
  6. AMLODIPINE [Concomitant]
     Indication: BLOOD PRESSURE
     Route: 048
  7. CLOPIDOGREL [Concomitant]
     Indication: ANGIOPLASTY
     Route: 048
     Dates: start: 20110101
  8. APIDRA SOLOSTAR [Suspect]
     Dosage: BEGAN TREATMENT ABOUT 4 YEARS AGO. INJECTION IS DAILY BEFORE LUNCH.
     Route: 058
  9. SOMALGIN [Concomitant]
     Indication: ANGIOPLASTY
     Route: 048
     Dates: start: 20110101
  10. BYETTA [Concomitant]
     Route: 058
     Dates: start: 20100101
  11. CLIKSTAR [Suspect]
  12. PREDNISONE [Concomitant]
     Route: 048
     Dates: start: 20090909
  13. NEBIVOLOL HCL [Concomitant]
     Indication: BLOOD PRESSURE
     Route: 048
  14. HYDRALAZINE HCL [Concomitant]
     Indication: BLOOD PRESSURE
     Route: 048

REACTIONS (3)
  - UNEVALUABLE EVENT [None]
  - RENAL DISORDER [None]
  - HYPERGLYCAEMIA [None]
